FAERS Safety Report 9132916 (Version 1)
Quarter: 2013Q1

REPORT INFORMATION
  Report Type: Spontaneous
  Country: DE (occurrence: DE)
  Receive Date: 20130128
  Receipt Date: 20130128
  Transmission Date: 20140127
  Serious: Yes (Other)
  Sender: FDA-Public Use
  Company Number: DE-SANOFI-AVENTIS-2013SA003259

PATIENT
  Sex: Male

DRUGS (2)
  1. MULTAQ [Suspect]
     Indication: ARRHYTHMIA
     Route: 048
     Dates: start: 20121217, end: 20130106
  2. NEBILET [Concomitant]

REACTIONS (5)
  - Electrocardiogram QT prolonged [Unknown]
  - Blood creatinine increased [Unknown]
  - Weight decreased [Unknown]
  - Abdominal pain [Recovered/Resolved]
  - Diarrhoea [Recovered/Resolved]
